FAERS Safety Report 11177201 (Version 1)
Quarter: 2015Q2

REPORT INFORMATION
  Report Type: Spontaneous
  Country: GB (occurrence: None)
  Receive Date: 20150608
  Receipt Date: 20150608
  Transmission Date: 20150821
  Serious: Yes (Other)
  Sender: FDA-Public Use
  Company Number: GB-LHC-2015064

PATIENT
  Age: 23 Year
  Sex: Female

DRUGS (1)
  1. NITROUS OXIDE. [Suspect]
     Active Substance: NITROUS OXIDE
     Indication: ANALGESIC THERAPY
     Dosage: TWICE PER WEEK, INHALATION
     Route: 055

REACTIONS (9)
  - Hypoaesthesia [None]
  - Ataxia [None]
  - Muscular weakness [None]
  - Drug abuse [None]
  - Lhermitte^s sign [None]
  - Burning sensation [None]
  - Micturition urgency [None]
  - Romberg test positive [None]
  - Blood homocysteine increased [None]
